FAERS Safety Report 22615139 (Version 6)
Quarter: 2023Q4

REPORT INFORMATION
  Report Type: Report from Study
  Country: US (occurrence: US)
  Receive Date: 20230619
  Receipt Date: 20231213
  Transmission Date: 20240110
  Serious: Yes (Other)
  Sender: FDA-Public Use
  Company Number: US-002147023-NVSC2023US139527

PATIENT
  Sex: Female

DRUGS (2)
  1. KISQALI [Suspect]
     Active Substance: RIBOCICLIB
     Indication: Product used for unknown indication
     Dosage: 600 MG
     Route: 065
  2. KISQALI [Suspect]
     Active Substance: RIBOCICLIB
     Dosage: 400 MG
     Route: 065

REACTIONS (10)
  - Pneumonitis [Unknown]
  - Cough [Unknown]
  - Neutropenia [Unknown]
  - Skin exfoliation [Unknown]
  - Skin burning sensation [Unknown]
  - Blood potassium increased [Unknown]
  - Weight increased [Unknown]
  - Stomatitis [Unknown]
  - Nausea [Recovered/Resolved]
  - Fatigue [Unknown]
